FAERS Safety Report 8880242 (Version 1)
Quarter: 2012Q4

REPORT INFORMATION
  Report Type: 
  Country: US (occurrence: US)
  Receive Date: 20121031
  Receipt Date: 20121031
  Transmission Date: 20130627
  Serious: Yes (Disabling, Other)
  Sender: FDA-Public Use
  Company Number: US-009507513-0705USA01336

PATIENT

DRUGS (3)
  1. FOSAMAX [Suspect]
     Indication: BONE DISORDER
     Dosage: 5 mg, qd
     Route: 048
     Dates: start: 19981216
  2. FOSAMAX [Suspect]
     Dosage: 70 mg, QW
     Route: 048
     Dates: start: 20020123, end: 200512
  3. SYNTHROID [Concomitant]
     Indication: HYPOTHYROIDISM
     Dates: start: 1986

REACTIONS (14)
  - Osteomyelitis [Not Recovered/Not Resolved]
  - Osteonecrosis of jaw [Not Recovered/Not Resolved]
  - Constipation [Unknown]
  - Irritable bowel syndrome [Unknown]
  - Periodontitis [Unknown]
  - Cataract [Unknown]
  - Cataract [Unknown]
  - Osteoporosis [Unknown]
  - Blood pressure increased [Unknown]
  - Polyp [Unknown]
  - Heart rate increased [Recovered/Resolved]
  - Herpes zoster [Unknown]
  - Fatigue [Unknown]
  - Osteopenia [Unknown]
